FAERS Safety Report 15616812 (Version 1)
Quarter: 2018Q4

REPORT INFORMATION
  Report Type: Spontaneous
  Country: US (occurrence: US)
  Receive Date: 20181109
  Receipt Date: 20181109
  Transmission Date: 20190205
  Serious: Yes (Disabling)
  Sender: FDA-Public Use
  Company Number: None

PATIENT
  Age: 28 Year
  Sex: Male
  Weight: 74.25 kg

DRUGS (1)
  1. CIPROFLOXACIN. [Suspect]
     Active Substance: CIPROFLOXACIN
     Indication: URINARY TRACT INFECTION
     Dosage: ?          QUANTITY:1 DF DOSAGE FORM;?
     Route: 048
     Dates: start: 20180607, end: 20180611

REACTIONS (7)
  - Joint noise [None]
  - Impaired self-care [None]
  - Arthritis [None]
  - Myalgia [None]
  - Asthenia [None]
  - Tendon disorder [None]
  - Gait inability [None]

NARRATIVE: CASE EVENT DATE: 20180611
